FAERS Safety Report 14256740 (Version 2)
Quarter: 2018Q1

REPORT INFORMATION
  Report Type: Spontaneous
  Country: US (occurrence: US)
  Receive Date: 20171206
  Receipt Date: 20180118
  Transmission Date: 20180508
  Serious: Yes (Other)
  Sender: FDA-Public Use
  Company Number: US-GLAXOSMITHKLINE-US2017187320

PATIENT
  Sex: Female
  Weight: 53.97 kg

DRUGS (11)
  1. BENLYSTA [Suspect]
     Active Substance: BELIMUMAB
     Dosage: UNK, CYC
     Route: 041
     Dates: start: 20171213
  2. BENLYSTA [Suspect]
     Active Substance: BELIMUMAB
     Dosage: 120MG; CYC
     Route: 041
     Dates: end: 20171025
  3. CELLCEPT [Concomitant]
     Active Substance: MYCOPHENOLATE MOFETIL\MYCOPHENOLATE MOFETIL HYDROCHLORIDE
     Dosage: 1500 MG, QD
  4. BENLYSTA [Suspect]
     Active Substance: BELIMUMAB
     Indication: SYSTEMIC LUPUS ERYTHEMATOSUS
     Dosage: 400MG; CYC
     Route: 041
     Dates: end: 20171025
  5. IMITREX [Concomitant]
     Active Substance: SUMATRIPTAN SUCCINATE
  6. LIQUID CALCIUM [Concomitant]
  7. ZOLOFT [Concomitant]
     Active Substance: SERTRALINE HYDROCHLORIDE
  8. NEXIUM [Concomitant]
     Active Substance: ESOMEPRAZOLE MAGNESIUM
  9. PREDNISONE. [Concomitant]
     Active Substance: PREDNISONE
  10. METHOTREXATE. [Concomitant]
     Active Substance: METHOTREXATE
     Dosage: 10 MG, WE
     Route: 048
  11. TRAMADOL. [Concomitant]
     Active Substance: TRAMADOL

REACTIONS (9)
  - Enteritis infectious [Recovered/Resolved]
  - Gastroenteritis bacterial [Recovered/Resolved]
  - Systemic lupus erythematosus [Not Recovered/Not Resolved]
  - Therapeutic response unexpected [Unknown]
  - Bone density increased [Unknown]
  - Back disorder [Not Recovered/Not Resolved]
  - Drug effect incomplete [Unknown]
  - Pain [Not Recovered/Not Resolved]
  - Drug dose omission [Unknown]
